FAERS Safety Report 15741715 (Version 1)
Quarter: 2018Q4

REPORT INFORMATION
  Report Type: Report from Study
  Country: IT (occurrence: IT)
  Receive Date: 20181219
  Receipt Date: 20181219
  Transmission Date: 20190205
  Serious: Yes (Other)
  Sender: FDA-Public Use
  Company Number: IT-BAYER-2018-232427

PATIENT
  Age: 24 Year
  Sex: Female

DRUGS (1)
  1. CIPROXIN [Suspect]
     Active Substance: CIPROFLOXACIN
     Dosage: UNK

REACTIONS (3)
  - Haematuria [Not Recovered/Not Resolved]
  - Drug ineffective [Not Recovered/Not Resolved]
  - Renal pain [Not Recovered/Not Resolved]

NARRATIVE: CASE EVENT DATE: 20181119
